FAERS Safety Report 21551937 (Version 5)
Quarter: 2024Q2

REPORT INFORMATION
  Report Type: Spontaneous
  Country: US (occurrence: US)
  Receive Date: 20221104
  Receipt Date: 20240612
  Transmission Date: 20240715
  Serious: Yes (Other)
  Sender: FDA-Public Use
  Company Number: US-SA-SAC20221103000245

PATIENT
  Age: 28 Year
  Sex: Male

DRUGS (6)
  1. ELOCTATE [Suspect]
     Active Substance: EFMOROCTOCOG ALFA
     Indication: Factor VIII deficiency
     Dosage: 5000 IU, BIW
     Route: 042
     Dates: start: 20161215
  2. ELOCTATE [Suspect]
     Active Substance: EFMOROCTOCOG ALFA
     Indication: Factor VIII deficiency
     Dosage: 5000 IU, BIW
     Route: 042
     Dates: start: 20161215
  3. ELOCTATE [Suspect]
     Active Substance: EFMOROCTOCOG ALFA
     Dosage: 5000 IU (4750-5250), BIW ON MONDAY/ THURSDAY, TUESDAY/ FRIDAY, OR WEDNESDAY/ SATURDAY
     Route: 042
     Dates: start: 202307
  4. ELOCTATE [Suspect]
     Active Substance: EFMOROCTOCOG ALFA
     Dosage: 5000 IU (4750-5250), BIW ON MONDAY/ THURSDAY, TUESDAY/ FRIDAY, OR WEDNESDAY/ SATURDAY
     Route: 042
     Dates: start: 202307
  5. ELOCTATE [Suspect]
     Active Substance: EFMOROCTOCOG ALFA
     Dosage: 5000 IU (4750-5250), AS NEEDED EVERY 24 HOURS (PRN) FOR BLEEDING
     Route: 042
     Dates: start: 202307
  6. ELOCTATE [Suspect]
     Active Substance: EFMOROCTOCOG ALFA
     Dosage: 5000 IU (4750-5250), AS NEEDED EVERY 24 HOURS (PRN) FOR BLEEDING
     Route: 042
     Dates: start: 202307

REACTIONS (7)
  - Haemorrhage [Not Recovered/Not Resolved]
  - Weight increased [Recovering/Resolving]
  - Haemorrhage [Recovered/Resolved]
  - Haemorrhage [Not Recovered/Not Resolved]
  - Haemorrhage [Not Recovered/Not Resolved]
  - Haemorrhage [Recovered/Resolved]
  - Haemorrhage [Not Recovered/Not Resolved]

NARRATIVE: CASE EVENT DATE: 20221027
